FAERS Safety Report 20592131 (Version 1)
Quarter: 2022Q1

REPORT INFORMATION
  Report Type: Spontaneous
  Country: US (occurrence: None)
  Receive Date: 20220314
  Receipt Date: 20220314
  Transmission Date: 20220424
  Serious: No
  Sender: FDA-Public Use
  Company Number: US-ROCHE-2747038

PATIENT
  Age: 57 Year
  Sex: Female
  Weight: 122.58 kg

DRUGS (6)
  1. XOLAIR [Suspect]
     Active Substance: OMALIZUMAB
     Indication: Asthma
     Dosage: ONGOING: UNKNOWN ; ROUTE : UNDER THE SKIN
     Route: 058
     Dates: start: 20200310
  2. HYDROCHLOROTHIAZIDE [Concomitant]
     Active Substance: HYDROCHLOROTHIAZIDE
     Dosage: ONGOING: UNKNOWN
     Dates: start: 20200226
  3. AZELASTINE HYDROCHLORIDE [Concomitant]
     Active Substance: AZELASTINE HYDROCHLORIDE
     Dosage: ONGOING: UNKNOWN
     Dates: start: 20200226
  4. BUDESONIDE [Concomitant]
     Active Substance: BUDESONIDE
     Dosage: ONGOING: UNKNOWN
     Dates: start: 20200226
  5. CELECOXIB [Concomitant]
     Active Substance: CELECOXIB
     Dosage: ONGOING: UNKNOWN
     Dates: start: 20200226
  6. MONTELUKAST [Concomitant]
     Active Substance: MONTELUKAST SODIUM
     Dosage: ONGOING: UNKNOWN
     Route: 048
     Dates: start: 20200226

REACTIONS (1)
  - Injection site pain [Unknown]

NARRATIVE: CASE EVENT DATE: 20200414
